FAERS Safety Report 19778359 (Version 1)
Quarter: 2021Q3

REPORT INFORMATION
  Report Type: Spontaneous
  Country: US (occurrence: US)
  Receive Date: 20210830
  Receipt Date: 20210830
  Transmission Date: 20211014
  Serious: Yes (Hospitalization)
  Sender: FDA-Public Use
  Company Number: None

PATIENT
  Sex: Female

DRUGS (2)
  1. CAPECITABINE NOVADOZ PHARMACEUTICALS [Suspect]
     Active Substance: CAPECITABINE
     Route: 048
     Dates: start: 201905
  2. CAPECITABINE NOVADOZ PHARMACEUTICALS [Suspect]
     Active Substance: CAPECITABINE
     Indication: RECTAL CANCER
     Route: 048
     Dates: start: 201905

REACTIONS (1)
  - Hospitalisation [None]
